FAERS Safety Report 7921624-0 (Version None)
Quarter: 2011Q4

REPORT INFORMATION
  Report Type: 
  Country: None (occurrence: None)
  Receive Date: 20111117
  Receipt Date: 20110915
  Transmission Date: 20120403
  Serious: Yes (Other)
  Sender: FDA-Public Use
  Company Number: US-BRISTOL-MYERS SQUIBB COMPANY-16063893

PATIENT

DRUGS (1)
  1. ETOPOSIDE [Suspect]

REACTIONS (1)
  - HYPERSENSITIVITY [None]
